FAERS Safety Report 12644696 (Version 3)
Quarter: 2016Q3

REPORT INFORMATION
  Report Type: Other
  Country: FR (occurrence: FR)
  Receive Date: 20160811
  Receipt Date: 20160921
  Transmission Date: 20161109
  Serious: Yes (Hospitalization)
  Sender: FDA-Public Use
  Company Number: FR-ASTELLAS-2016US030531

PATIENT
  Age: 18 Year
  Sex: Female

DRUGS (12)
  1. ZITHROMAX [Suspect]
     Active Substance: AZITHROMYCIN DIHYDRATE
     Indication: PROPHYLAXIS URINARY TRACT INFECTION
     Dosage: 1000 MG, TOTAL DOSE (4 DF IN ONE INTAKE)
     Route: 048
     Dates: start: 20160716, end: 20160716
  2. ORAP [Concomitant]
     Active Substance: PIMOZIDE
     Indication: PRODUCT USED FOR UNKNOWN INDICATION
     Route: 065
  3. PROGRAF [Interacting]
     Active Substance: TACROLIMUS\TACROLIMUS ANHYDROUS
     Dosage: 2 MG, TWICE DAILY (MORNING AND EVENING)
     Route: 065
     Dates: start: 20160723
  4. CEFTRIAXONE. [Suspect]
     Active Substance: CEFTRIAXONE
     Indication: PRODUCT USED FOR UNKNOWN INDICATION
     Dosage: 500 MG, TOTAL DOSE (ONE INTAKE)
     Route: 065
     Dates: start: 20160716, end: 20160716
  5. PRAVASTATIN. [Concomitant]
     Active Substance: PRAVASTATIN
     Indication: PRODUCT USED FOR UNKNOWN INDICATION
     Route: 065
  6. ELLAONE [Concomitant]
     Active Substance: ULIPRISTAL ACETATE
     Indication: PRODUCT USED FOR UNKNOWN INDICATION
     Dosage: 1 SINGLE DOSE, UNKNOWN FREQUENCY
     Route: 065
     Dates: start: 20160716
  7. PROGRAF [Suspect]
     Active Substance: TACROLIMUS\TACROLIMUS ANHYDROUS
     Indication: HEART TRANSPLANT
     Dosage: 2 MG, TWICE DAILY (2 DF TWICE DAILY)
     Route: 048
     Dates: end: 20160718
  8. XANAX [Concomitant]
     Active Substance: ALPRAZOLAM
     Indication: ANXIETY
     Dosage: 0.25 MG, AS NEEDED
     Route: 065
  9. TRUVADA [Suspect]
     Active Substance: EMTRICITABINE\TENOFOVIR DISOPROXIL FUMARATE
     Indication: PROPHYLAXIS AGAINST HIV INFECTION
     Route: 048
     Dates: start: 20160716, end: 20160720
  10. DESOGESTREL [Concomitant]
     Active Substance: DESOGESTREL
     Indication: PRODUCT USED FOR UNKNOWN INDICATION
     Route: 065
  11. VENTOLINE                          /00139501/ [Concomitant]
     Active Substance: ALBUTEROL
     Indication: PRODUCT USED FOR UNKNOWN INDICATION
     Dosage: UNK UNK, AS NEEDED
     Route: 065
  12. KALETRA [Interacting]
     Active Substance: LOPINAVIR\RITONAVIR
     Indication: PROPHYLAXIS AGAINST HIV INFECTION
     Dosage: 2 DF (STRENGTH: 200 MG/ 50 MG), TWICE DAILY
     Route: 048
     Dates: start: 20160716, end: 20160720

REACTIONS (3)
  - Anxiety [Unknown]
  - Immunosuppressant drug level increased [Recovered/Resolved]
  - Drug interaction [Unknown]

NARRATIVE: CASE EVENT DATE: 20160720
